FAERS Safety Report 12842010 (Version 1)
Quarter: 2016Q4

REPORT INFORMATION
  Report Type: Spontaneous
  Country: FR (occurrence: FR)
  Receive Date: 20161012
  Receipt Date: 20161012
  Transmission Date: 20170207
  Serious: Yes (Death, Hospitalization, Other)
  Sender: FDA-Public Use
  Company Number: FR-BAXTER-2016BAX052014

PATIENT
  Sex: Male

DRUGS (71)
  1. NAVELBINE [Suspect]
     Active Substance: VINORELBINE TARTRATE
     Indication: METASTASES TO MUSCLE
  2. CAELYX [Suspect]
     Active Substance: DOXORUBICIN HYDROCHLORIDE
     Indication: METASTATIC LYMPHOMA
     Dosage: CYCLICAL, FIFTH LINE CHEMOTHERAPY WITH GVD THEN BENDAMUSTINE
     Route: 042
     Dates: start: 20160701, end: 20160729
  3. DOXORUBICIN [Suspect]
     Active Substance: DOXORUBICIN
     Indication: HODGKIN^S DISEASE REFRACTORY
  4. VINCRISTINE [Suspect]
     Active Substance: VINCRISTINE
     Indication: HODGKIN^S DISEASE REFRACTORY
  5. VINCRISTINE [Suspect]
     Active Substance: VINCRISTINE
     Indication: METASTASES TO MUSCLE
  6. RITUXIMAB [Suspect]
     Active Substance: RITUXIMAB
     Indication: METASTASES TO MUSCLE
  7. OXALIPLATIN. [Suspect]
     Active Substance: OXALIPLATIN
     Indication: METASTASES TO MUSCLE
  8. CARBOPLATIN. [Suspect]
     Active Substance: CARBOPLATIN
     Indication: METASTATIC LYMPHOMA
     Dosage: FIFTH LINE CHEMOTHERAPY WITH 2 ICE
     Route: 065
  9. CARBOPLATIN. [Suspect]
     Active Substance: CARBOPLATIN
     Indication: METASTASES TO BONE
  10. KEPPRA [Concomitant]
     Active Substance: LEVETIRACETAM
     Indication: PRODUCT USED FOR UNKNOWN INDICATION
     Route: 065
  11. HOLOXAN 2000 MG, POUDRE POUR USAGE PARENT?RAL [Suspect]
     Active Substance: IFOSFAMIDE
     Indication: METASTATIC LYMPHOMA
     Dosage: FIFTH LINE CHEMOTHERAPY WITH 2 ICE
     Route: 065
  12. CELLTOP 100 MG/5 ML, SOLUTION INJECTABLE POUR PERFUSION [Suspect]
     Active Substance: ETOPOSIDE
     Indication: HODGKIN^S DISEASE REFRACTORY
  13. CELLTOP 100 MG/5 ML, SOLUTION INJECTABLE POUR PERFUSION [Suspect]
     Active Substance: ETOPOSIDE
     Indication: METASTASES TO BONE
  14. NAVELBINE [Suspect]
     Active Substance: VINORELBINE TARTRATE
     Indication: OFF LABEL USE
  15. RITUXIMAB [Suspect]
     Active Substance: RITUXIMAB
     Indication: METASTATIC LYMPHOMA
     Dosage: FIFTH LINE CHEMOTHERAPY WITH 7 R-CHOP
     Route: 065
  16. RITUXIMAB [Suspect]
     Active Substance: RITUXIMAB
     Indication: METASTASES TO BONE
  17. CIPROFLOXACINE [Concomitant]
     Active Substance: CIPROFLOXACIN
     Indication: PRODUCT USED FOR UNKNOWN INDICATION
     Route: 065
     Dates: start: 20160816
  18. HOLOXAN 2000 MG, POUDRE POUR USAGE PARENT?RAL [Suspect]
     Active Substance: IFOSFAMIDE
     Indication: METASTASES TO BONE
  19. CELLTOP 100 MG/5 ML, SOLUTION INJECTABLE POUR PERFUSION [Suspect]
     Active Substance: ETOPOSIDE
     Indication: METASTATIC LYMPHOMA
     Dosage: FIFTH LINE CHEMOTHERAPY WITH 2 ICE
     Route: 065
  20. NAVELBINE [Suspect]
     Active Substance: VINORELBINE TARTRATE
     Indication: METASTATIC LYMPHOMA
  21. CAELYX [Suspect]
     Active Substance: DOXORUBICIN HYDROCHLORIDE
     Indication: METASTASES TO MUSCLE
  22. LEVACT [Suspect]
     Active Substance: BENDAMUSTINE HYDROCHLORIDE
     Indication: METASTATIC LYMPHOMA
     Dosage: CYCLICAL, FIFTH LINE CHEMOTHERAPY WITH GVD THEN BENDAMUSTINE
     Route: 042
     Dates: start: 20160811, end: 20160812
  23. PREDNISONE. [Suspect]
     Active Substance: PREDNISONE
     Indication: HODGKIN^S DISEASE REFRACTORY
  24. PREDNISONE. [Suspect]
     Active Substance: PREDNISONE
     Indication: METASTASES TO MUSCLE
  25. CYTARABINE. [Suspect]
     Active Substance: CYTARABINE
     Indication: METASTASES TO MUSCLE
  26. OXALIPLATIN. [Suspect]
     Active Substance: OXALIPLATIN
     Indication: METASTATIC LYMPHOMA
     Dosage: FIFTH LINE CHEMOTHERAPY WITH 3 RDHAX
     Route: 065
  27. OXALIPLATIN. [Suspect]
     Active Substance: OXALIPLATIN
     Indication: HODGKIN^S DISEASE REFRACTORY
  28. METEOSPASMYL [Concomitant]
     Active Substance: ALVERINE CITRATE\DIMETHICONE
     Indication: PRODUCT USED FOR UNKNOWN INDICATION
     Route: 065
  29. PRIMPERAN [Concomitant]
     Active Substance: METOCLOPRAMIDE HYDROCHLORIDE
     Indication: PRODUCT USED FOR UNKNOWN INDICATION
     Route: 065
  30. ENDOXAN 1000 MG, POUDRE POUR SOLUTIONINJECTABLE [Suspect]
     Active Substance: CYCLOPHOSPHAMIDE
     Indication: METASTATIC LYMPHOMA
     Dosage: FIFTH LINE CHEMOTHERAPY WITH 7 R-CHOP
     Route: 065
  31. GEMCITABINE [Suspect]
     Active Substance: GEMCITABINE\GEMCITABINE HYDROCHLORIDE
     Indication: METASTATIC LYMPHOMA
     Dosage: FIFTH LINE CHEMOTHERAPY WITH GVD THEN BENDAMUSTINE
     Route: 042
     Dates: start: 20160701, end: 20160729
  32. GEMCITABINE [Suspect]
     Active Substance: GEMCITABINE\GEMCITABINE HYDROCHLORIDE
     Indication: METASTASES TO BONE
  33. LEVACT [Suspect]
     Active Substance: BENDAMUSTINE HYDROCHLORIDE
     Indication: METASTASES TO BONE
  34. PREDNISONE. [Suspect]
     Active Substance: PREDNISONE
     Indication: METASTATIC LYMPHOMA
     Dosage: FIFTH LINE CHEMOTHERAPY WITH 7 R-CHOP
     Route: 065
  35. CYTARABINE. [Suspect]
     Active Substance: CYTARABINE
     Indication: METASTATIC LYMPHOMA
     Dosage: FIFTH LINE CHEMOTHERAPY WITH 3 RDHAX
     Route: 065
  36. CARBOPLATIN. [Suspect]
     Active Substance: CARBOPLATIN
     Indication: HODGKIN^S DISEASE REFRACTORY
  37. WELLVONE [Concomitant]
     Active Substance: ATOVAQUONE
     Indication: PRODUCT USED FOR UNKNOWN INDICATION
     Route: 065
  38. EPREX [Concomitant]
     Active Substance: ERYTHROPOIETIN
     Indication: PRODUCT USED FOR UNKNOWN INDICATION
     Route: 065
  39. HOLOXAN 2000 MG, POUDRE POUR USAGE PARENT?RAL [Suspect]
     Active Substance: IFOSFAMIDE
     Indication: HODGKIN^S DISEASE REFRACTORY
  40. GEMCITABINE [Suspect]
     Active Substance: GEMCITABINE\GEMCITABINE HYDROCHLORIDE
     Indication: HODGKIN^S DISEASE REFRACTORY
  41. CAELYX [Suspect]
     Active Substance: DOXORUBICIN HYDROCHLORIDE
     Indication: METASTASES TO BONE
  42. LEVACT [Suspect]
     Active Substance: BENDAMUSTINE HYDROCHLORIDE
     Indication: HODGKIN^S DISEASE REFRACTORY
  43. VINCRISTINE [Suspect]
     Active Substance: VINCRISTINE
     Indication: METASTATIC LYMPHOMA
     Dosage: FIFTH LINE CHEMOTHERAPY WITH 7 R-CHOP
     Route: 065
  44. VINCRISTINE [Suspect]
     Active Substance: VINCRISTINE
     Indication: METASTASES TO BONE
  45. RITUXIMAB [Suspect]
     Active Substance: RITUXIMAB
     Indication: HODGKIN^S DISEASE REFRACTORY
     Dosage: FIFTH LINE CHEMOTHERAPY WITH 3 RDHAX
     Route: 065
  46. CARBOPLATIN. [Suspect]
     Active Substance: CARBOPLATIN
     Indication: METASTASES TO MUSCLE
  47. ALLOPURINOL. [Concomitant]
     Active Substance: ALLOPURINOL
     Indication: PRODUCT USED FOR UNKNOWN INDICATION
     Route: 065
  48. ENDOXAN 1000 MG, POUDRE POUR SOLUTIONINJECTABLE [Suspect]
     Active Substance: CYCLOPHOSPHAMIDE
     Indication: HODGKIN^S DISEASE REFRACTORY
  49. CELLTOP 100 MG/5 ML, SOLUTION INJECTABLE POUR PERFUSION [Suspect]
     Active Substance: ETOPOSIDE
     Indication: METASTASES TO MUSCLE
  50. DOXORUBICIN [Suspect]
     Active Substance: DOXORUBICIN
     Indication: METASTATIC LYMPHOMA
     Dosage: FIFTH LINE CHEMOTHERAPY WITH 7 R-CHOP
     Route: 065
  51. OXALIPLATIN. [Suspect]
     Active Substance: OXALIPLATIN
     Indication: METASTASES TO BONE
  52. NEUPOGEN [Concomitant]
     Active Substance: FILGRASTIM
     Indication: PRODUCT USED FOR UNKNOWN INDICATION
     Route: 065
  53. RULID [Concomitant]
     Active Substance: ROXITHROMYCIN
     Indication: PRODUCT USED FOR UNKNOWN INDICATION
     Route: 065
     Dates: start: 20160816
  54. ENDOXAN 1000 MG, POUDRE POUR SOLUTIONINJECTABLE [Suspect]
     Active Substance: CYCLOPHOSPHAMIDE
     Indication: METASTASES TO MUSCLE
  55. HOLOXAN 2000 MG, POUDRE POUR USAGE PARENT?RAL [Suspect]
     Active Substance: IFOSFAMIDE
     Indication: METASTASES TO MUSCLE
  56. NAVELBINE [Suspect]
     Active Substance: VINORELBINE TARTRATE
     Indication: METASTASES TO BONE
  57. DOXORUBICIN [Suspect]
     Active Substance: DOXORUBICIN
     Indication: METASTASES TO MUSCLE
  58. DOXORUBICIN [Suspect]
     Active Substance: DOXORUBICIN
     Indication: METASTASES TO BONE
  59. PREDNISONE. [Suspect]
     Active Substance: PREDNISONE
     Indication: METASTASES TO BONE
  60. DEXAMETHASONE. [Suspect]
     Active Substance: DEXAMETHASONE
     Indication: METASTATIC LYMPHOMA
     Dosage: FIFTH LINE CHEMOTHERAPY WITH 3 RDHAX
     Route: 065
  61. DEXAMETHASONE. [Suspect]
     Active Substance: DEXAMETHASONE
     Indication: METASTASES TO BONE
  62. ENDOXAN 1000 MG, POUDRE POUR SOLUTIONINJECTABLE [Suspect]
     Active Substance: CYCLOPHOSPHAMIDE
     Indication: METASTASES TO BONE
  63. NAVELBINE [Suspect]
     Active Substance: VINORELBINE TARTRATE
     Indication: HODGKIN^S DISEASE REFRACTORY
     Dosage: FIFTH LINE CHEMOTHERAPY WITH GVD THEN BENDAMUSTINE
     Route: 042
     Dates: start: 20160701, end: 20160729
  64. GEMCITABINE [Suspect]
     Active Substance: GEMCITABINE\GEMCITABINE HYDROCHLORIDE
     Indication: METASTASES TO MUSCLE
  65. CAELYX [Suspect]
     Active Substance: DOXORUBICIN HYDROCHLORIDE
     Indication: HODGKIN^S DISEASE REFRACTORY
  66. LEVACT [Suspect]
     Active Substance: BENDAMUSTINE HYDROCHLORIDE
     Indication: METASTASES TO MUSCLE
  67. DEXAMETHASONE. [Suspect]
     Active Substance: DEXAMETHASONE
     Indication: HODGKIN^S DISEASE REFRACTORY
  68. DEXAMETHASONE. [Suspect]
     Active Substance: DEXAMETHASONE
     Indication: METASTASES TO MUSCLE
  69. CYTARABINE. [Suspect]
     Active Substance: CYTARABINE
     Indication: HODGKIN^S DISEASE REFRACTORY
  70. CYTARABINE. [Suspect]
     Active Substance: CYTARABINE
     Indication: METASTASES TO BONE
  71. CORTANCYL [Concomitant]
     Active Substance: PREDNISONE
     Indication: PRODUCT USED FOR UNKNOWN INDICATION
     Route: 065

REACTIONS (4)
  - Off label use [Unknown]
  - Jaundice cholestatic [Fatal]
  - Febrile bone marrow aplasia [Fatal]
  - Malignant neoplasm progression [Unknown]
